FAERS Safety Report 8213224-2 (Version None)
Quarter: 2012Q1

REPORT INFORMATION
  Report Type: 
  Country: None (occurrence: None)
  Receive Date: 20120315
  Receipt Date: 20120308
  Transmission Date: 20120608
  Serious: Yes (Hospitalization)
  Sender: FDA-Public Use
  Company Number: FR-GILEAD-2012-0052102

PATIENT
  Sex: Female

DRUGS (5)
  1. SOLU-MEDROL [Concomitant]
  2. COMBIVIR [Concomitant]
  3. NORVIR [Concomitant]
  4. DAUNOXOME [Suspect]
     Indication: KAPOSI'S SARCOMA
     Dosage: 68 MG, UNK
     Dates: start: 20120212, end: 20120212
  5. PREZISTA [Concomitant]

REACTIONS (1)
  - NEPHROTIC SYNDROME [None]
